FAERS Safety Report 4558174-8 (Version None)
Quarter: 2005Q1

REPORT INFORMATION
  Report Type: 
  Country: None (occurrence: None)
  Receive Date: 20050121
  Receipt Date: 20050118
  Transmission Date: 20050727
  Serious: Yes (Other)
  Sender: FDA-Public Use
  Company Number: PHNR2005AU00468

PATIENT
  Sex: Female

DRUGS (1)
  1. CLOZARIL [Suspect]
     Dosage: 12.5 - 150 MG, DAILY
     Dates: start: 20041129, end: 20041220

REACTIONS (2)
  - CARDIAC DISORDER [None]
  - TROPONIN INCREASED [None]
